FAERS Safety Report 6893799-6 (Version None)
Quarter: 2010Q3

REPORT INFORMATION
  Report Type: 
  Country: None (occurrence: None)
  Receive Date: 20100802
  Receipt Date: 20100722
  Transmission Date: 20110219
  Serious: Yes (Death, Other)
  Sender: FDA-Public Use
  Company Number: US-BIOGENIDEC-2010BI025432

PATIENT
  Sex: Male

DRUGS (3)
  1. AVONEX [Suspect]
     Indication: MULTIPLE SCLEROSIS
     Route: 030
  2. BETASERON [Concomitant]
     Indication: MULTIPLE SCLEROSIS
  3. STEROIDS (NOS) [Concomitant]
     Indication: MULTIPLE SCLEROSIS

REACTIONS (3)
  - ABDOMINAL ADHESIONS [None]
  - BLOOD DISORDER [None]
  - INTESTINAL PERFORATION [None]
